FAERS Safety Report 9646672 (Version 2)
Quarter: 2013Q4

REPORT INFORMATION
  Report Type: Report from Study
  Country: US (occurrence: US)
  Receive Date: 20131026
  Receipt Date: 20131026
  Transmission Date: 20140711
  Serious: Yes (Hospitalization)
  Sender: FDA-Public Use
  Company Number: US-BRISTOL-MYERS SQUIBB COMPANY-19162635

PATIENT
  Age: 42 Year
  Sex: Female
  Weight: 53 kg

DRUGS (11)
  1. SPRYCEL [Suspect]
     Indication: ACUTE LYMPHOCYTIC LEUKAEMIA
     Dosage: 70MG PO QD FOR COURSES3,5,7AND9.?TOTALL:1500MG,1900MG?LAST ADMINISTERED:30JUN13,29MAY13.
     Route: 048
     Dates: start: 20130305, end: 20130701
  2. MESNA [Suspect]
     Indication: ACUTE LYMPHOCYTIC LEUKAEMIA
     Dosage: TOTAL DOSE ADMINISTEREDL:2850MG.?LAST ADMINISTERED:02JUN13.?OVER 24HRS ON DAY 1-3.
     Route: 042
     Dates: start: 20130305
  3. CYCLOPHOSPHAMIDE [Suspect]
     Indication: ACUTE LYMPHOCYTIC LEUKAEMIA
     Dosage: TOTAL DOSE ADMINISTEREDL:2850MG.?LAST ADMINISTERED DATE:06FEB13.?OVER 3 HRS ON DAYS1-3.
     Route: 042
     Dates: start: 20130305
  4. CYTARABINE [Suspect]
     Indication: ACUTE LYMPHOCYTIC LEUKAEMIA
     Dosage: 100MG ITORINTRA-OMMAYA.?3G/M2IV.?TOTAL:19.44MG,18.6G?LAST ADMINISTERED:24JUN13,15MAY13.
     Route: 037
     Dates: start: 20130305
  5. DEXAMETHASONE [Suspect]
     Indication: ACUTE LYMPHOCYTIC LEUKAEMIA
     Dosage: IV OR ORAL.?TOTAL DOSE ADMINISTEREDL:160MG.?LAST ADMINISTERED:03JUN13.?ON DAYS 1-4 AND 11-14.
     Route: 042
     Dates: start: 20130305
  6. DOXORUBICIN HCL [Suspect]
     Indication: ACUTE LYMPHOCYTIC LEUKAEMIA
     Dosage: TOTAL DOSE ADMINISTEREDL:80MG.?LAST ADMINISTERED:06FEB13.?OVER 24 HRS ON DAY 4.
     Route: 042
     Dates: start: 20130305
  7. GRANULOCYTE COLONY-STIMULATING FACTOR NOS [Suspect]
     Indication: ACUTE LYMPHOCYTIC LEUKAEMIA
     Dosage: L0MCG/KG QD OR 5MCG/KG BID SQ.?TOTAL L:6MG,2400MG?LAST:26JUN13,25MAY13
     Route: 058
     Dates: start: 20130305
  8. LEUCOVORIN CALCIUM [Suspect]
     Indication: ACUTE LYMPHOCYTIC LEUKAEMIA
     Dosage: FOLLOWED BY 15MG IV.?TOTAL DOSE ADMINISTEREDL:50MG.?LAST ADMINISTERED:23JUN13,14MAY13.
     Route: 042
     Dates: start: 20130305
  9. METHOTREXATE [Suspect]
     Indication: ACUTE LYMPHOCYTIC LEUKAEMIA
     Dosage: 12MG ITOR6MG INTRAOMMAYA.?200MG/M2IV.800MG/M2IV.?TO DOSEAN:1620MG,1562MG?LT ADN:21JUN13,13MAY13.
     Route: 037
     Dates: start: 20130305
  10. METHYLPREDNISOLONE [Suspect]
     Indication: ACUTE LYMPHOCYTIC LEUKAEMIA
     Dosage: TOTAL DOSE ADMINISTEREDL:300MG.?LAST ADMINISTERED:24JUN13,15MAY13.
     Route: 042
     Dates: start: 20130305
  11. VINCRISTINE SULFATE [Suspect]
     Indication: ACUTE LYMPHOCYTIC LEUKAEMIA
     Dosage: TOTAL DOSE ADMINISTEREDL:2MG.?LAST ADMINISTERED:2JUN13.?OVER 30 MIN ON DAYS  4 AND 11.
     Route: 042
     Dates: start: 20130305

REACTIONS (8)
  - Febrile neutropenia [Recovering/Resolving]
  - Platelet count decreased [Recovering/Resolving]
  - Gastrointestinal haemorrhage [Recovering/Resolving]
  - Anaemia [Recovering/Resolving]
  - Skin infection [Recovered/Resolved]
  - Cytomegalovirus infection [Recovered/Resolved]
  - Colitis [Recovered/Resolved]
  - Upper respiratory tract infection [Recovered/Resolved]
